FAERS Safety Report 19595226 (Version 1)
Quarter: 2021Q3

REPORT INFORMATION
  Report Type: Report from Study
  Country: NO (occurrence: NO)
  Receive Date: 20210722
  Receipt Date: 20210722
  Transmission Date: 20211014
  Serious: Yes (Hospitalization)
  Sender: FDA-Public Use
  Company Number: NO-TAKEDA-2021TUS042387

PATIENT
  Age: 48 Year
  Sex: Male

DRUGS (7)
  1. STELARA [Concomitant]
     Active Substance: USTEKINUMAB
     Indication: CROHN^S DISEASE
     Dosage: 45 MILLIGRAM, Q6WEEKS
     Route: 058
     Dates: start: 20190228
  2. TEDUGLUTIDE [Suspect]
     Active Substance: TEDUGLUTIDE
     Indication: PRODUCT USED FOR UNKNOWN INDICATION
     Dosage: 3.20 MILLIGRAM, QD
     Route: 065
     Dates: start: 2020
  3. DETREMIN [Concomitant]
     Indication: CROHN^S DISEASE
     Dosage: 10 GTT DROPS, QD
     Route: 048
     Dates: start: 2020
  4. TEDUGLUTIDE [Suspect]
     Active Substance: TEDUGLUTIDE
     Indication: PRODUCT USED FOR UNKNOWN INDICATION
     Dosage: 3.20 MILLIGRAM, QD
     Route: 065
     Dates: start: 2020
  5. TEDUGLUTIDE [Suspect]
     Active Substance: TEDUGLUTIDE
     Indication: PRODUCT USED FOR UNKNOWN INDICATION
     Dosage: 3.20 MILLIGRAM, QD
     Route: 065
     Dates: start: 2020
  6. REVESTIVE [Concomitant]
     Active Substance: TEDUGLUTIDE
     Indication: SHORT-BOWEL SYNDROME
     Dosage: 0.32 MILLILITER, QD
     Route: 058
     Dates: start: 2020
  7. TEDUGLUTIDE [Suspect]
     Active Substance: TEDUGLUTIDE
     Indication: PRODUCT USED FOR UNKNOWN INDICATION
     Dosage: 3.20 MILLIGRAM, QD
     Route: 065
     Dates: start: 2020

REACTIONS (1)
  - Cold sweat [Recovered/Resolved]

NARRATIVE: CASE EVENT DATE: 20210330
